FAERS Safety Report 24602864 (Version 1)
Quarter: 2024Q4

REPORT INFORMATION
  Report Type: Report from Study
  Country: TH (occurrence: TH)
  Receive Date: 20241111
  Receipt Date: 20241111
  Transmission Date: 20250115
  Serious: Yes (Other)
  Sender: ROCHE
  Company Number: TH-ROCHE-10000124714

PATIENT
  Age: 76 Year
  Sex: Male

DRUGS (10)
  1. TOCILIZUMAB [Suspect]
     Active Substance: TOCILIZUMAB
     Indication: COVID-19 pneumonia
     Route: 065
  2. DEXAMETHASONE [Concomitant]
     Active Substance: DEXAMETHASONE
  3. PREDNISOLONE [Concomitant]
     Active Substance: PREDNISOLONE
  4. PREDNISOLONE [Concomitant]
     Active Substance: PREDNISOLONE
  5. TOFACITINIB [Concomitant]
     Active Substance: TOFACITINIB
  6. BARICITINIB [Concomitant]
     Active Substance: BARICITINIB
  7. SULFASALAZINE [Concomitant]
     Active Substance: SULFASALAZINE
  8. MYCOPHENOLATE MOFETIL [Concomitant]
     Active Substance: MYCOPHENOLATE MOFETIL
  9. TACROLIMUS [Concomitant]
     Active Substance: TACROLIMUS
  10. HYDROXYCHLOROQUINE [Concomitant]
     Active Substance: HYDROXYCHLOROQUINE

REACTIONS (4)
  - Pseudomonal sepsis [Unknown]
  - Systemic candida [Unknown]
  - Pulmonary embolism [Unknown]
  - Off label use [Unknown]
